FAERS Safety Report 19803777 (Version 1)
Quarter: 2021Q3

REPORT INFORMATION
  Report Type: Spontaneous
  Country: US (occurrence: US)
  Receive Date: 20210902
  Receipt Date: 20210902
  Transmission Date: 20211014
  Serious: No
  Sender: FDA-Public Use
  Company Number: None

PATIENT
  Age: 51 Year
  Sex: Female

DRUGS (1)
  1. SUTENT [Suspect]
     Active Substance: SUNITINIB MALATE
     Dosage: 12.5MG EVERY OTHER DA
     Route: 048
     Dates: start: 202004

REACTIONS (1)
  - Hepatectomy [None]

NARRATIVE: CASE EVENT DATE: 20210830
